FAERS Safety Report 4766653-3 (Version None)
Quarter: 2005Q3

REPORT INFORMATION
  Report Type: 
  Country: None (occurrence: None)
  Receive Date: 20050912
  Receipt Date: 20050803
  Transmission Date: 20060218
  Serious: Yes (Disabling, Other)
  Sender: FDA-Public Use
  Company Number: BE-ABBOTT-05P-013-0310634-00

PATIENT
  Sex: Female

DRUGS (1)
  1. HUMIRA [Suspect]
     Indication: RHEUMATOID ARTHRITIS
     Route: 042
     Dates: start: 20050323, end: 20050613

REACTIONS (3)
  - EPIDERMOLYSIS BULLOSA [None]
  - EYELID OEDEMA [None]
  - LYMPHADENOPATHY [None]
